FAERS Safety Report 5855921-X (Version None)
Quarter: 2008Q3

REPORT INFORMATION
  Report Type: 
  Country: None (occurrence: None)
  Receive Date: 20080825
  Receipt Date: 20080818
  Transmission Date: 20090109
  Serious: Yes (Other)
  Sender: FDA-Public Use
  Company Number: PHBS2008IT05431

PATIENT
  Age: 66 Year
  Sex: Female

DRUGS (3)
  1. PAMIDRONATE DISODIUM [Suspect]
     Indication: OSTEOPOROSIS
     Dosage: 60 MG, BIW
     Route: 042
  2. PAMIDRONATE DISODIUM [Suspect]
     Dosage: 60 MG, TIW
     Route: 042
  3. CALCIUM [Concomitant]

REACTIONS (6)
  - DEBRIDEMENT [None]
  - ORAL INFECTION [None]
  - OSTEONECROSIS [None]
  - PAIN [None]
  - TOOTH EXTRACTION [None]
  - WEIGHT DECREASED [None]
